FAERS Safety Report 7917186-4 (Version None)
Quarter: 2011Q4

REPORT INFORMATION
  Report Type: 
  Country: None (occurrence: None)
  Receive Date: 20111116
  Receipt Date: 20111115
  Transmission Date: 20120403
  Serious: Yes (Death)
  Sender: FDA-Public Use
  Company Number: RU-BAYER-2011-110540

PATIENT

DRUGS (1)
  1. ASPIRIN [Suspect]
     Dosage: LONG-TERM WITHDRAWN PRIOR TO OPERATION

REACTIONS (1)
  - INTRAVENTRICULAR HAEMORRHAGE [None]
